FAERS Safety Report 13779294 (Version 1)
Quarter: 2017Q3

REPORT INFORMATION
  Report Type: Spontaneous
  Country: GB (occurrence: GB)
  Receive Date: 20170721
  Receipt Date: 20170721
  Transmission Date: 20171127
  Serious: Yes (Hospitalization)
  Sender: FDA-Public Use
  Company Number: GB-TORRENT-00015433

PATIENT
  Age: 72 Year
  Sex: Male

DRUGS (16)
  1. CARBOCYSTEINE [Suspect]
     Active Substance: CARBOCYSTEINE
  2. DIGOXIN. [Concomitant]
     Active Substance: DIGOXIN
  3. DOXYCYCLINE HYDROCHLORIDE [Concomitant]
     Active Substance: DOXYCYCLINE HYDROCHLORIDE
  4. CLOPIDOGREL [Suspect]
     Active Substance: CLOPIDOGREL BISULFATE
  5. CALCIUM RESONIUM [Concomitant]
  6. OMEPRAZOLE. [Concomitant]
     Active Substance: OMEPRAZOLE
  7. PARACETAMOL [Concomitant]
     Active Substance: ACETAMINOPHEN
  8. RAMIPRIL. [Concomitant]
     Active Substance: RAMIPRIL
  9. ENOXAPARIN SODIUM. [Concomitant]
     Active Substance: ENOXAPARIN SODIUM
  10. COTRIMOXAZOLE [Concomitant]
     Active Substance: SULFAMETHOXAZOLE\TRIMETHOPRIM
  11. QUININE SULFATE. [Concomitant]
     Active Substance: QUININE SULFATE
  12. METFORMIN [Concomitant]
     Active Substance: METFORMIN HYDROCHLORIDE
  13. RANITIDINE. [Concomitant]
     Active Substance: RANITIDINE
  14. ALOGLIPTIN. [Concomitant]
     Active Substance: ALOGLIPTIN
  15. FUSIDIC ACID [Concomitant]
     Active Substance: FUSIDIC ACID
  16. CODEINE [Concomitant]
     Active Substance: CODEINE

REACTIONS (4)
  - Haematemesis [Recovering/Resolving]
  - Duodenal ulcer haemorrhage [Recovering/Resolving]
  - Duodenitis [Recovering/Resolving]
  - Melaena [Recovering/Resolving]

NARRATIVE: CASE EVENT DATE: 20170629
